FAERS Safety Report 5206850-6 (Version None)
Quarter: 2006Q4

REPORT INFORMATION
  Report Type: 
  Country: None (occurrence: None)
  Receive Date: 20061030
  Receipt Date: 20060817
  Transmission Date: 20070319
  Serious: No
  Sender: FDA-Public Use
  Company Number: 256270

PATIENT
  Age: 23 Year
  Sex: Female
  Weight: 90.7 kg

DRUGS (6)
  1. LEVEMIR [Suspect]
     Indication: DIABETES MELLITUS INSULIN-DEPENDENT
     Dosage: 34 IU, QD, SUBCUTANEOUS
     Route: 058
     Dates: start: 20060726
  2. HUMALOG [Concomitant]
  3. CONTRACEPTIVES NOS [Concomitant]
  4. LEXAPRO [Concomitant]
  5. LEVOTHYROXINE SODIUM [Concomitant]
  6. ALTACE [Concomitant]

REACTIONS (1)
  - FREQUENT BOWEL MOVEMENTS [None]
